FAERS Safety Report 5853706-1 (Version None)
Quarter: 2008Q3

REPORT INFORMATION
  Report Type: 
  Country: None (occurrence: None)
  Receive Date: 20080822
  Receipt Date: 20080811
  Transmission Date: 20090109
  Serious: Yes (Hospitalization, Disabling)
  Sender: FDA-Public Use
  Company Number: JP-AMGEN-US296865

PATIENT
  Sex: Female
  Weight: 49 kg

DRUGS (11)
  1. ENBREL [Suspect]
     Indication: RHEUMATOID ARTHRITIS
     Route: 058
     Dates: start: 20080628, end: 20080701
  2. RHEUMATREX [Suspect]
     Indication: RHEUMATOID ARTHRITIS
     Route: 048
     Dates: start: 20080616, end: 20080630
  3. INFREE [Concomitant]
     Indication: POLYMYALGIA RHEUMATICA
     Route: 048
     Dates: start: 20080616, end: 20080630
  4. BASEN [Concomitant]
     Indication: DIABETES MELLITUS
     Route: 048
  5. BASEN [Concomitant]
     Route: 048
  6. MINOCYCLINE HYDROCHLORIDE [Concomitant]
     Indication: RHEUMATOID ARTHRITIS
     Route: 048
  7. LANSOPRAZOLE [Concomitant]
     Indication: RHEUMATOID ARTHRITIS
     Route: 048
  8. NORVASC [Concomitant]
     Indication: HYPERTENSION
     Route: 048
  9. LIPITOR [Concomitant]
     Indication: HYPERLIPIDAEMIA
     Route: 048
  10. BLOPRESS [Concomitant]
     Indication: HYPERTENSION
     Route: 048
     Dates: end: 20080702
  11. GASTROM [Concomitant]
     Indication: RHEUMATOID ARTHRITIS
     Route: 048
     Dates: end: 20080718

REACTIONS (2)
  - NEPHROTIC SYNDROME [None]
  - RENAL FAILURE ACUTE [None]
